FAERS Safety Report 14720377 (Version 3)
Quarter: 2019Q1

REPORT INFORMATION
  Report Type: Report from Study
  Country: BE (occurrence: BE)
  Receive Date: 20180405
  Receipt Date: 20190204
  Transmission Date: 20190417
  Serious: Yes (Hospitalization, Other)
  Sender: FDA-Public Use
  Company Number: BE-MYLANLABS-2018M1020579

PATIENT
  Age: 81 Year
  Sex: Female
  Weight: 69 kg

DRUGS (5)
  1. AVASTIN [Suspect]
     Active Substance: BEVACIZUMAB
     Dosage: 1006 MG, Q3W
     Route: 042
     Dates: start: 20160122
  2. PACLITAXEL. [Suspect]
     Active Substance: PACLITAXEL
     Indication: OVARIAN CANCER
     Dosage: 60 MILLIGRAM/SQ. METER, QW
     Route: 042
     Dates: start: 20151002, end: 20160415
  3. AVASTIN [Suspect]
     Active Substance: BEVACIZUMAB
     Indication: OVARIAN CANCER
     Dosage: 1035 MG, Q3W
     Route: 042
     Dates: start: 20151002
  4. AVASTIN [Suspect]
     Active Substance: BEVACIZUMAB
     Dosage: RECENT DOSE PRIOR TO AE ON 04/MAR/2016.
     Route: 042
     Dates: start: 20160415, end: 20160415
  5. CARBOPLATIN. [Suspect]
     Active Substance: CARBOPLATIN
     Indication: OVARIAN CANCER
     Dosage: UNK UNK, Q3W
     Route: 042
     Dates: start: 20151002, end: 20160415

REACTIONS (6)
  - Hyperkalaemia [Recovered/Resolved]
  - Deep vein thrombosis [Recovered/Resolved]
  - Hypertension [Recovered/Resolved]
  - Anaemia [Recovered/Resolved]
  - Hypomagnesaemia [Not Recovered/Not Resolved]
  - Tumour haemorrhage [Recovered/Resolved]

NARRATIVE: CASE EVENT DATE: 20151002
